FAERS Safety Report 23279835 (Version 1)
Quarter: 2023Q4

REPORT INFORMATION
  Report Type: Spontaneous
  Country: IN (occurrence: IN)
  Receive Date: 20231209
  Receipt Date: 20231209
  Transmission Date: 20240110
  Serious: Yes (Hospitalization, Other)
  Sender: FDA-Public Use
  Company Number: IN-MLMSERVICE-2023112746946211

PATIENT
  Age: 49 Year
  Sex: Male

DRUGS (7)
  1. QUETIAPINE FUMARATE [Suspect]
     Active Substance: QUETIAPINE FUMARATE
     Indication: Bipolar II disorder
     Dosage: 50 TO 100 MG/D
  2. LEVOSULPIRIDE [Suspect]
     Active Substance: LEVOSULPIRIDE
     Indication: Bipolar II disorder
  3. HALOPERIDOL [Suspect]
     Active Substance: HALOPERIDOL
     Indication: Bipolar II disorder
     Dosage: 1.25 TO 2.5 MG/D
  4. DIVALPROEX SODIUM [Concomitant]
     Active Substance: DIVALPROEX SODIUM
     Indication: Bipolar II disorder
     Dosage: 250 MG/D OVER 3-4 MONTHS
  5. HALOPERIDOL [Suspect]
     Active Substance: HALOPERIDOL
     Indication: Bipolar II disorder
     Dosage: 1.25 TO 2.5 MG/D
  6. HALOPERIDOL [Suspect]
     Active Substance: HALOPERIDOL
     Indication: Affective disorder
     Dosage: 1.25 TO 2.5 MG/D
  7. LEVOSULPIRIDE [Suspect]
     Active Substance: LEVOSULPIRIDE
     Indication: Affective disorder

REACTIONS (4)
  - Condition aggravated [Recovering/Resolving]
  - Affective disorder [Recovering/Resolving]
  - Extrapyramidal disorder [Recovering/Resolving]
  - Tardive dyskinesia [Recovering/Resolving]
